FAERS Safety Report 9445689 (Version 9)
Quarter: 2014Q1

REPORT INFORMATION
  Report Type: Spontaneous
  Country: GB (occurrence: GB)
  Receive Date: 20130807
  Receipt Date: 20140124
  Transmission Date: 20141002
  Serious: Yes (Hospitalization)
  Sender: FDA-Public Use
  Company Number: GB-PFIZER INC-2013226976

PATIENT
  Age: 79 Year
  Sex: Female

DRUGS (7)
  1. RAMIPRIL [Suspect]
     Dosage: UNK
     Route: 048
  2. BISOPROLOL FUMARATE [Suspect]
     Dosage: UNK
     Route: 065
  3. ATENOLOL [Concomitant]
     Indication: MYOCARDIAL INFARCTION
     Dosage: UNK
     Route: 048
  4. SIMVASTATIN [Concomitant]
     Indication: MYOCARDIAL INFARCTION
     Dosage: UNK
     Route: 048
  5. TAMOXIFEN [Concomitant]
     Indication: BREAST CANCER
     Dosage: UNK
     Route: 048
  6. ASA [Concomitant]
     Dosage: 75 MG, UNK
     Route: 048
  7. BLINDED THERAPY [Concomitant]
     Indication: CORONARY ARTERY DISEASE
     Dosage: UNK
     Dates: start: 20110721

REACTIONS (6)
  - Food poisoning [Recovered/Resolved]
  - Vomiting [Recovered/Resolved]
  - Fall [Recovered/Resolved]
  - Hypotension [Recovered/Resolved]
  - Hand fracture [Recovered/Resolved]
  - Circulatory collapse [Recovered/Resolved]
